FAERS Safety Report 23263595 (Version 5)
Quarter: 2024Q1

REPORT INFORMATION
  Report Type: Spontaneous
  Country: US (occurrence: US)
  Receive Date: 20231205
  Receipt Date: 20240228
  Transmission Date: 20240409
  Serious: No
  Sender: FDA-Public Use
  Company Number: US-PFIZER INC-PV202300193348

PATIENT
  Age: 14 Year
  Sex: Male
  Weight: 48.526 kg

DRUGS (1)
  1. GENOTROPIN [Suspect]
     Active Substance: SOMATROPIN
     Indication: Growth hormone deficiency
     Dosage: AT BED TIME

REACTIONS (5)
  - Drug dose omission by device [Unknown]
  - Device use error [Unknown]
  - Device breakage [Unknown]
  - Device issue [Unknown]
  - Device leakage [Unknown]

NARRATIVE: CASE EVENT DATE: 20231101
